FAERS Safety Report 5115260-1 (Version None)
Quarter: 2006Q3

REPORT INFORMATION
  Report Type: 
  Country: None (occurrence: None)
  Receive Date: 20060926
  Receipt Date: 20060710
  Transmission Date: 20061208
  Serious: Yes (Hospitalization, Disabling)
  Sender: FDA-Public Use
  Company Number: US-GLAXOSMITHKLINE-A0612106A

PATIENT
  Age: 29 Year
  Sex: Female
  Weight: 59 kg

DRUGS (6)
  1. LAMICTAL [Suspect]
     Dosage: 25MG PER DAY
     Route: 048
     Dates: start: 20040304, end: 20040325
  2. ZYPREXA [Concomitant]
     Indication: BIPOLAR DISORDER
     Route: 048
     Dates: start: 20040302, end: 20040325
  3. TYLENOL PM [Concomitant]
  4. NYQUIL [Concomitant]
  5. MOTRIN [Concomitant]
  6. MUCINEX [Concomitant]

REACTIONS (38)
  - ANAEMIA [None]
  - BACTERAEMIA [None]
  - CHILLS [None]
  - COMA [None]
  - CONJUNCTIVITIS [None]
  - COUGH [None]
  - DIARRHOEA [None]
  - DRY EYE [None]
  - EYE PAIN [None]
  - HEADACHE [None]
  - HEPATIC ENZYME INCREASED [None]
  - HYPERGLYCAEMIA [None]
  - HYPERHIDROSIS [None]
  - HYPERSENSITIVITY [None]
  - HYPOKALAEMIA [None]
  - HYPOTENSION [None]
  - HYPOVOLAEMIA [None]
  - METABOLIC ACIDOSIS [None]
  - NAIL GROWTH ABNORMAL [None]
  - ODYNOPHAGIA [None]
  - ORAL MUCOSAL BLISTERING [None]
  - PAIN [None]
  - PHARYNGOLARYNGEAL PAIN [None]
  - PHOTOPHOBIA [None]
  - PRURITUS [None]
  - PYREXIA [None]
  - RASH [None]
  - RESPIRATORY ALKALOSIS [None]
  - RESPIRATORY FAILURE [None]
  - SCAR [None]
  - SEPSIS [None]
  - SKIN HYPERPIGMENTATION [None]
  - STEVENS-JOHNSON SYNDROME [None]
  - TACHYCARDIA [None]
  - THROAT TIGHTNESS [None]
  - TOXIC EPIDERMAL NECROLYSIS [None]
  - VISUAL DISTURBANCE [None]
  - WHEEZING [None]
